FAERS Safety Report 19941900 (Version 1)
Quarter: 2021Q4

REPORT INFORMATION
  Report Type: Spontaneous
  Country: CN (occurrence: CN)
  Receive Date: 20211011
  Receipt Date: 20211011
  Transmission Date: 20220303
  Serious: Yes (Other)
  Sender: FDA-Public Use
  Company Number: CN-BAXTER-2021BAX028651

PATIENT
  Age: 44 Year
  Sex: Female
  Weight: 57 kg

DRUGS (12)
  1. CYCLOPHOSPHAMIDE [Suspect]
     Active Substance: CYCLOPHOSPHAMIDE
     Indication: Breast cancer
     Dosage: PRIOR DRUG: CYCLOPHOSPHAMIDE FOR INJECTION
     Route: 065
  2. CYCLOPHOSPHAMIDE [Suspect]
     Active Substance: CYCLOPHOSPHAMIDE
     Dosage: INTRAPUMP, 1ST CYCLE CHEMOTHERAPY
     Route: 050
  3. CYCLOPHOSPHAMIDE [Suspect]
     Active Substance: CYCLOPHOSPHAMIDE
     Dosage: INTRA-PUMP INJECTION; NORMAL SALINE 40ML + CYCLOPHOSPHAMIDE 0.8G/IVVP D1
     Route: 050
     Dates: start: 20210212, end: 20210212
  4. CYCLOPHOSPHAMIDE [Suspect]
     Active Substance: CYCLOPHOSPHAMIDE
     Dosage: INTRAPUMP, DOSE REINTRODUCED
     Route: 050
  5. SODIUM CHLORIDE [Suspect]
     Active Substance: SODIUM CHLORIDE
     Indication: Medication dilution
     Dosage: PRIOR ADVERSE DRUG(DILUTION FOR CYCLOPHOSPHAMIDE AND EPIRUBICIN HYDROCHLORIDE)
     Route: 065
  6. SODIUM CHLORIDE [Suspect]
     Active Substance: SODIUM CHLORIDE
     Dosage: 1ST CYCLE CHEMOTHERAPY (DILUTION FOR CYCLOPHOSPHAMIDE AND EPIRUBICIN HYDROCHLORIDE)
     Route: 041
  7. SODIUM CHLORIDE [Suspect]
     Active Substance: SODIUM CHLORIDE
     Dosage: INTRAPUMP (4TH CHEMOTHERAPY) ( CYCLOPHOSPHAMIDE 0.8G + SODIUM CHLORIDE 40 ML)
     Route: 050
     Dates: start: 20210212, end: 20210212
  8. SODIUM CHLORIDE [Suspect]
     Active Substance: SODIUM CHLORIDE
     Dosage: NORMAL SALINE 250ML + EPIRUBICIN 120 MG
     Route: 041
     Dates: start: 20210212, end: 20210212
  9. SODIUM CHLORIDE [Suspect]
     Active Substance: SODIUM CHLORIDE
     Dosage: DOSE REINTRODUCED, (DILUTION FOR CYCLOPHOSPHAMIDE AND EPIRUBICIN HYDROCHLORIDE)
     Route: 041
  10. EPIRUBICIN HYDROCHLORIDE [Suspect]
     Active Substance: EPIRUBICIN HYDROCHLORIDE
     Indication: Breast cancer
     Dosage: PRIOR DRUG: EPIRUBICIN HYDROCHLORIDE FOR INJECTION
     Route: 065
  11. EPIRUBICIN HYDROCHLORIDE [Suspect]
     Active Substance: EPIRUBICIN HYDROCHLORIDE
     Dosage: NORMAL SALINE 250ML + EPIRUBICIN 120 MG/DRIP D1
     Route: 041
     Dates: start: 20210212, end: 20210212
  12. EPIRUBICIN HYDROCHLORIDE [Suspect]
     Active Substance: EPIRUBICIN HYDROCHLORIDE
     Dosage: DOSE RE-INTRODUCED
     Route: 041

REACTIONS (4)
  - Leukopenia [Recovering/Resolving]
  - Anaemia [Recovering/Resolving]
  - Granulocytopenia [Recovering/Resolving]
  - Pancytopenia [Unknown]

NARRATIVE: CASE EVENT DATE: 20210219
